FAERS Safety Report 22852942 (Version 3)
Quarter: 2025Q2

REPORT INFORMATION
  Report Type: Report from Study
  Country: CA (occurrence: CA)
  Receive Date: 20230823
  Receipt Date: 20250508
  Transmission Date: 20250717
  Serious: Yes (Hospitalization)
  Sender: NOVARTIS
  Company Number: CA-002147023-NVSC2023CA180817

PATIENT
  Age: 28 Year
  Sex: Female

DRUGS (7)
  1. COSENTYX [Suspect]
     Active Substance: SECUKINUMAB
     Indication: Psoriatic arthropathy
     Dosage: 300 MG, QW (0, 1, 2, 3, AND 4 WEEKLY, (FIRST INJECTION/ ASSOCIATED INJECTION)
     Route: 058
     Dates: start: 20230815
  2. COSENTYX [Suspect]
     Active Substance: SECUKINUMAB
     Route: 065
     Dates: start: 20230829
  3. COSENTYX [Suspect]
     Active Substance: SECUKINUMAB
     Dosage: 300 MG, QMO
     Route: 058
  4. METHOTREXATE [Concomitant]
     Active Substance: METHOTREXATE
     Indication: Product used for unknown indication
     Route: 058
     Dates: start: 202304
  5. SULFASALAZINE [Concomitant]
     Active Substance: SULFASALAZINE
     Indication: Product used for unknown indication
     Route: 065
     Dates: start: 202304
  6. INDOMETHACIN [Concomitant]
     Active Substance: INDOMETHACIN
     Indication: Product used for unknown indication
     Route: 048
  7. MORPHINE [Concomitant]
     Active Substance: MORPHINE
     Indication: Product used for unknown indication
     Route: 065

REACTIONS (12)
  - Fatigue [Unknown]
  - Muscle tightness [Unknown]
  - Chest discomfort [Unknown]
  - Pain [Unknown]
  - Abdominal pain [Unknown]
  - Headache [Unknown]
  - Feeling cold [Unknown]
  - Dizziness [Unknown]
  - Ear pain [Unknown]
  - Adnexa uteri pain [Unknown]
  - Gastrointestinal pain [Unknown]
  - Inflammation [Unknown]

NARRATIVE: CASE EVENT DATE: 20230816
